FAERS Safety Report 6235478-4 (Version None)
Quarter: 2009Q2

REPORT INFORMATION
  Report Type: 
  Country: None (occurrence: None)
  Receive Date: 20090618
  Receipt Date: 20080424
  Transmission Date: 20091009
  Serious: No
  Sender: FDA-Public Use
  Company Number: US-ASTRAZENECA-2008UW08433

PATIENT
  Age: 68 Year
  Sex: Female
  Weight: 55.8 kg

DRUGS (4)
  1. RHINOCORT [Suspect]
     Indication: NASAL CONGESTION
     Dosage: ONE SPRAY IN EACH NOSTRIL
     Route: 045
  2. RHINOCORT [Suspect]
     Indication: SINUS OPERATION
     Dosage: ONE SPRAY IN EACH NOSTRIL
     Route: 045
  3. PAIN MEDICATION [Concomitant]
     Indication: NASAL CONGESTION
  4. PAIN MEDICATION [Concomitant]
     Indication: ABNORMAL SENSATION IN EYE

REACTIONS (2)
  - EPISTAXIS [None]
  - HAEMOPTYSIS [None]
